FAERS Safety Report 8228200-3 (Version None)
Quarter: 2012Q1

REPORT INFORMATION
  Report Type: 
  Country: None (occurrence: None)
  Receive Date: 20120322
  Receipt Date: 20111115
  Transmission Date: 20120608
  Serious: No
  Sender: FDA-Public Use
  Company Number: US-BAUSCH-2011BL008095

PATIENT
  Age: 77 Year
  Sex: Male

DRUGS (3)
  1. CROMOLYN SODIUM [Suspect]
     Indication: SEASONAL ALLERGY
     Route: 047
     Dates: start: 20111107, end: 20111107
  2. ALOCRIL [Concomitant]
  3. PROPYLENE GLYCOL [Concomitant]

REACTIONS (2)
  - DRUG ADMINISTRATION ERROR [None]
  - SUPERFICIAL INJURY OF EYE [None]
